FAERS Safety Report 5578554-1 (Version None)
Quarter: 2007Q4

REPORT INFORMATION
  Report Type: 
  Country: None (occurrence: None)
  Receive Date: 20071227
  Receipt Date: 20071210
  Transmission Date: 20080405
  Serious: Yes (Death, Hospitalization, Other)
  Sender: FDA-Public Use
  Company Number: 2007US003124

PATIENT
  Age: 59 Year
  Sex: Female

DRUGS (1)
  1. AMBISOME [Suspect]
     Indication: BRONCHOPULMONARY ASPERGILLOSIS
     Dosage: 5 MG/KG, UID/QD, IV NOS
     Route: 042

REACTIONS (3)
  - FEBRILE NEUTROPENIA [None]
  - PNEUMOPERICARDIUM [None]
  - RESPIRATORY FAILURE [None]
